FAERS Safety Report 11457160 (Version 1)
Quarter: 2015Q3

REPORT INFORMATION
  Report Type: Report from Study
  Country: US (occurrence: US)
  Receive Date: 20150904
  Receipt Date: 20150904
  Transmission Date: 20151125
  Serious: No
  Sender: FDA-Public Use
  Company Number: PHEH2015US004837

PATIENT
  Age: 51 Year
  Sex: Female
  Weight: 63.49 kg

DRUGS (1)
  1. GILENYA [Suspect]
     Active Substance: FINGOLIMOD HYDROCHLORIDE
     Indication: RELAPSING-REMITTING MULTIPLE SCLEROSIS
     Dosage: 0.5 MG, QD
     Route: 048
     Dates: start: 20140825, end: 201507

REACTIONS (8)
  - Blood pressure increased [Recovered/Resolved]
  - Fatigue [Unknown]
  - Nail disorder [Unknown]
  - Onychoclasis [Unknown]
  - Increased tendency to bruise [Unknown]
  - Nail growth abnormal [Unknown]
  - Contusion [Unknown]
  - Malaise [Unknown]

NARRATIVE: CASE EVENT DATE: 20150416
